FAERS Safety Report 7237090-7 (Version None)
Quarter: 2011Q1

REPORT INFORMATION
  Report Type: 
  Country: None (occurrence: None)
  Receive Date: 20110111
  Receipt Date: 20101231
  Transmission Date: 20110831
  Serious: Yes (Death)
  Sender: FDA-Public Use
  Company Number: IDA-00478

PATIENT
  Age: 51 Year
  Sex: Female

DRUGS (6)
  1. BUTALBITAL ACETAMINOPHEN AND CAFFEINE [Suspect]
     Dosage: DAILY DOSE: ROUTE OF ADMINISTRATION: ORAL FORMULATION
     Route: 048
  2. PROPRANOLOL [Suspect]
     Dosage: DAILY DOSE: ROUTE OF ADMINISTRATION: ORAL FORMUALTION
     Route: 048
  3. (OXYCODONE) [Suspect]
     Dosage: DAILY DOSE: ROUTE OF ADMINISTRATION: ORAL FORMULATION
     Route: 048
  4. CYCLOBENZAPRINE [Suspect]
     Dosage: DAILY DOSE: ROUTE OF ADMINISTRATION: ORAL FORMULATION
     Route: 048
  5. TEMAZEPAM [Suspect]
     Dosage: DAILY DOSE: ROUTE OF ADMINISTRATION: ORAL FORMULATION
     Route: 048
  6. (FUROSEMIDE) [Suspect]
     Dosage: DAILY DOSE: ROUTE OF ADMINISTRATION: ORAL FORMULATION
     Route: 048

REACTIONS (2)
  - TOXICITY TO VARIOUS AGENTS [None]
  - COMPLETED SUICIDE [None]
